FAERS Safety Report 18275219 (Version 2)
Quarter: 2020Q4

REPORT INFORMATION
  Report Type: Report from Study
  Country: US (occurrence: US)
  Receive Date: 20200916
  Receipt Date: 20201005
  Transmission Date: 20210113
  Serious: Yes (Death, Hospitalization)
  Sender: FDA-Public Use
  Company Number: US-JNJFOC-A-NJ2016-142102

PATIENT
  Age: 39 Year
  Sex: Female
  Weight: 81.4 kg

DRUGS (10)
  1. DESFERAL [Concomitant]
     Active Substance: DEFEROXAMINE MESYLATE
  2. OPSUMIT [Suspect]
     Active Substance: MACITENTAN
     Indication: PULMONARY HYPERTENSION
  3. OXYCODONE [Concomitant]
     Active Substance: OXYCODONE
  4. ARIXTRA [Concomitant]
     Active Substance: FONDAPARINUX SODIUM
  5. CELEXA [Concomitant]
     Active Substance: CITALOPRAM HYDROBROMIDE
  6. PROCHLORPERAZINE. [Concomitant]
     Active Substance: PROCHLORPERAZINE
  7. OPSUMIT [Suspect]
     Active Substance: MACITENTAN
     Indication: PULMONARY ARTERIAL HYPERTENSION
     Dosage: 10 MG, QD
     Route: 048
     Dates: start: 201604, end: 20200709
  8. PHENERGAN [Concomitant]
     Active Substance: PROMETHAZINE HYDROCHLORIDE
  9. MS CONTIN [Concomitant]
     Active Substance: MORPHINE SULFATE
  10. HYDROXYZINE [Concomitant]
     Active Substance: HYDROXYZINE HYDROCHLORIDE

REACTIONS (7)
  - Arthralgia [Unknown]
  - Headache [Unknown]
  - Death [Fatal]
  - Chest pain [Unknown]
  - Thrombophlebitis [Unknown]
  - Sickle cell anaemia with crisis [Unknown]
  - Pulmonary embolism [Recovering/Resolving]

NARRATIVE: CASE EVENT DATE: 20160820
